FAERS Safety Report 13792141 (Version 1)
Quarter: 2017Q3

REPORT INFORMATION
  Report Type: Spontaneous
  Country: US (occurrence: US)
  Receive Date: 20170725
  Receipt Date: 20170725
  Transmission Date: 20171127
  Serious: Yes (Other)
  Sender: FDA-Public Use
  Company Number: US-ROCHE-695735

PATIENT

DRUGS (1)
  1. TICLID [Suspect]
     Active Substance: TICLOPIDINE HYDROCHLORIDE
     Indication: PRODUCT USED FOR UNKNOWN INDICATION
     Dosage: DRUG DISCONTINUED
     Route: 065

REACTIONS (4)
  - Urticaria [Unknown]
  - Lip swelling [Unknown]
  - Hypoaesthesia oral [Unknown]
  - Blood pressure increased [Unknown]
